FAERS Safety Report 13042464 (Version 2)
Quarter: 2017Q1

REPORT INFORMATION
  Report Type: Spontaneous
  Country: US (occurrence: US)
  Receive Date: 20161219
  Receipt Date: 20170117
  Transmission Date: 20170428
  Serious: Yes (Hospitalization, Other)
  Sender: FDA-Public Use
  Company Number: US-BRISTOL-MYERS SQUIBB COMPANY-BMS-2016-106687

PATIENT
  Age: 41 Year
  Sex: Female

DRUGS (4)
  1. GABAPENTIN. [Concomitant]
     Active Substance: GABAPENTIN
     Indication: PRODUCT USED FOR UNKNOWN INDICATION
     Route: 065
  2. DAKLINZA [Suspect]
     Active Substance: DACLATASVIR
     Indication: HEPATITIS C
     Dosage: 1 TAB, QD
     Route: 048
  3. MULTIVITAMIN                       /00097801/ [Concomitant]
     Active Substance: VITAMINS
     Indication: PRODUCT USED FOR UNKNOWN INDICATION
     Route: 065
  4. HYDROCODONE/ACETAMINOPHEN [Concomitant]
     Active Substance: ACETAMINOPHEN\HYDROCODONE
     Indication: PRODUCT USED FOR UNKNOWN INDICATION
     Route: 065

REACTIONS (17)
  - Pneumonia [Unknown]
  - Gastric ulcer [Unknown]
  - Oxygen saturation decreased [Unknown]
  - Cough [Unknown]
  - Increased tendency to bruise [Unknown]
  - Onychoclasis [Unknown]
  - Ear infection [Unknown]
  - Respiratory tract congestion [Not Recovered/Not Resolved]
  - Swelling [Unknown]
  - Migraine [Unknown]
  - Bronchitis [Unknown]
  - Constipation [Unknown]
  - Sinusitis [Unknown]
  - Asthma [Unknown]
  - Pain [Unknown]
  - Alopecia [Unknown]
  - Product use issue [Unknown]
